FAERS Safety Report 21760722 (Version 1)
Quarter: 2022Q4

REPORT INFORMATION
  Report Type: Spontaneous
  Country: US (occurrence: None)
  Receive Date: 20221220
  Receipt Date: 20221220
  Transmission Date: 20230113
  Serious: Yes (Disabling, Other)
  Sender: FDA-Public Use
  Company Number: None

PATIENT
  Age: 40 Year
  Sex: Female
  Weight: 83.01 kg

DRUGS (2)
  1. PARAGARD T 380A [Suspect]
     Active Substance: COPPER
  2. UNSPECIFIED INGREDIENT [Suspect]
     Active Substance: UNSPECIFIED INGREDIENT

REACTIONS (7)
  - Anaemia [None]
  - Anxiety [None]
  - Depression [None]
  - Fatigue [None]
  - Device toxicity [None]
  - Depressed level of consciousness [None]
  - Impaired driving ability [None]

NARRATIVE: CASE EVENT DATE: 20220101
